FAERS Safety Report 12984174 (Version 2)
Quarter: 2017Q1

REPORT INFORMATION
  Report Type: Spontaneous
  Country: US (occurrence: US)
  Receive Date: 20161129
  Receipt Date: 20170313
  Transmission Date: 20170428
  Serious: Yes (Other)
  Sender: FDA-Public Use
  Company Number: US-JNJFOC-20161122007

PATIENT
  Sex: Male

DRUGS (1)
  1. TYLENOL WITH CODEINE [Suspect]
     Active Substance: ACETAMINOPHEN\CODEINE PHOSPHATE
     Indication: PRODUCT USED FOR UNKNOWN INDICATION
     Route: 048
     Dates: end: 20161110

REACTIONS (9)
  - Squamous cell carcinoma [Unknown]
  - Nasal polyps [Recovered/Resolved]
  - Tooth extraction [Unknown]
  - Withdrawal syndrome [Not Recovered/Not Resolved]
  - Nasal septum deviation [Unknown]
  - Speech disorder [Unknown]
  - Surgery [Unknown]
  - Adverse event [Unknown]
  - Product formulation issue [Unknown]

NARRATIVE: CASE EVENT DATE: 2010
